FAERS Safety Report 9842688 (Version 1)
Quarter: 2014Q1

REPORT INFORMATION
  Report Type: Spontaneous
  Country: US (occurrence: US)
  Receive Date: 20140124
  Receipt Date: 20140124
  Transmission Date: 20141002
  Serious: Yes (Other)
  Sender: FDA-Public Use
  Company Number: US-PFIZER INC-2014022661

PATIENT
  Age: 59 Year
  Sex: Female
  Weight: 58.05 kg

DRUGS (6)
  1. LIPITOR [Suspect]
     Indication: BLOOD CHOLESTEROL INCREASED
     Dosage: 20 MG, DAILY
     Dates: start: 1996
  2. NASONEX [Concomitant]
     Dosage: UNK, AS NEEDED
     Route: 045
  3. ASPIRIN [Concomitant]
     Dosage: 81 MG, 1X/DAY
  4. VITAMIN D [Concomitant]
     Dosage: UNK, EVERY 3 MONTHS
  5. LISINOPRIL [Concomitant]
     Indication: CARDIAC DISORDER
     Dosage: 10 MG, 1X/DAY
  6. DILTIAZEM [Concomitant]
     Indication: CARDIAC DISORDER
     Dosage: 180 MG, 1X/DAY

REACTIONS (4)
  - Amnesia [Unknown]
  - Haemorrhage [Unknown]
  - Bone cancer [Unknown]
  - Skin lesion [Unknown]
